FAERS Safety Report 10640751 (Version 1)
Quarter: 2014Q4

REPORT INFORMATION
  Report Type: Spontaneous
  Country: US (occurrence: US)
  Receive Date: 20141209
  Receipt Date: 20141209
  Transmission Date: 20150529
  Serious: No
  Sender: FDA-Public Use
  Company Number: US-PFIZER INC-2014335823

PATIENT
  Age: 64 Year
  Sex: Female
  Weight: 68 kg

DRUGS (3)
  1. ESTRING [Suspect]
     Active Substance: ESTRADIOL
     Indication: LOWER URINARY TRACT SYMPTOMS
     Dosage: 2 MG, EVERY 3 MONTHS
  2. ESTRING [Interacting]
     Active Substance: ESTRADIOL
     Indication: VULVOVAGINAL DRYNESS
  3. REPLENS [Interacting]
     Active Substance: CARBOMER 934\GLYCERIN\METHYLPARABEN\PROPYLPARABEN\SODIUM HYDROXIDE
     Indication: INADEQUATE LUBRICATION
     Dosage: ONCE EVERY THREE DAYS
     Dates: start: 201409

REACTIONS (2)
  - Drug interaction [Not Recovered/Not Resolved]
  - Vaginal discharge [Not Recovered/Not Resolved]

NARRATIVE: CASE EVENT DATE: 201411
